FAERS Safety Report 21513627 (Version 1)
Quarter: 2022Q4

REPORT INFORMATION
  Report Type: Spontaneous
  Country: US (occurrence: None)
  Receive Date: 20221027
  Receipt Date: 20221027
  Transmission Date: 20230113
  Serious: Yes (Hospitalization)
  Sender: FDA-Public Use
  Company Number: None

PATIENT
  Age: 31 Year
  Sex: Male
  Weight: 76 kg

DRUGS (7)
  1. UNSPECIFIED INGREDIENT [Suspect]
     Active Substance: UNSPECIFIED INGREDIENT
  2. HUMIRA [Concomitant]
     Active Substance: ADALIMUMAB
     Dosage: FREQUENCY : WEEKLY;?
  3. CYANOCOBALAMIN [Concomitant]
     Active Substance: CYANOCOBALAMIN
  4. HYDROCORTISONE [Concomitant]
     Active Substance: HYDROCORTISONE
     Dosage: OTHER FREQUENCY : 10MGAFNOON/10MGEVE;?
  5. VITAMINS [Concomitant]
     Active Substance: VITAMINS
  6. ONDANSETRON [Concomitant]
     Active Substance: ONDANSETRON
     Dosage: FREQUENCY : TWICE A DAY;?
  7. PROCHLORPERAZINE [Concomitant]
     Active Substance: PROCHLORPERAZINE
     Dosage: FREQUENCY : TWICE A DAY;?

REACTIONS (6)
  - Adrenocortical insufficiency acute [None]
  - Abdominal pain [None]
  - Dizziness [None]
  - Nausea [None]
  - Vomiting [None]
  - Tachycardia [None]

NARRATIVE: CASE EVENT DATE: 20200905
